FAERS Safety Report 4714092-3 (Version None)
Quarter: 2005Q3

REPORT INFORMATION
  Report Type: 
  Country: None (occurrence: None)
  Receive Date: 20050714
  Receipt Date: 20050630
  Transmission Date: 20060218
  Serious: Yes (Hospitalization)
  Sender: FDA-Public Use
  Company Number: 2005AP03582

PATIENT

DRUGS (1)
  1. MEROPENEM [Suspect]

REACTIONS (1)
  - LIVER DISORDER [None]
